FAERS Safety Report 9613245 (Version 1)
Quarter: 2013Q4

REPORT INFORMATION
  Report Type: Spontaneous
  Country: DE (occurrence: DE)
  Receive Date: 20131010
  Receipt Date: 20131010
  Transmission Date: 20140711
  Serious: Yes (Hospitalization)
  Sender: FDA-Public Use
  Company Number: DE-GLAXOSMITHKLINE-D0080742A

PATIENT
  Age: 42 Year
  Sex: Female
  Weight: 94 kg

DRUGS (3)
  1. TYVERB [Suspect]
     Indication: BREAST CANCER METASTATIC
     Dosage: 1250MG PER DAY
     Route: 048
     Dates: start: 20130723, end: 2013
  2. XELODA [Concomitant]
     Indication: BREAST CANCER METASTATIC
     Dosage: 4000MG PER DAY
     Route: 065
     Dates: start: 20130723
  3. LOPERAMID [Concomitant]
     Indication: DIARRHOEA
     Route: 065
     Dates: start: 20130731, end: 20130804

REACTIONS (4)
  - Diarrhoea [Recovered/Resolved]
  - Nausea [Recovered/Resolved]
  - Vomiting [Recovered/Resolved]
  - Hypokalaemia [Recovered/Resolved]
